FAERS Safety Report 11126840 (Version 2)
Quarter: 2015Q2

REPORT INFORMATION
  Report Type: Report from Study
  Country: HK (occurrence: HK)
  Receive Date: 20150520
  Receipt Date: 20150529
  Transmission Date: 20150821
  Serious: Yes (Hospitalization, Other)
  Sender: FDA-Public Use
  Company Number: HK-TAKEDA-2015TUS006460

PATIENT
  Age: 35 Year
  Sex: Male
  Weight: 66.5 kg

DRUGS (9)
  1. VEDOLIZUMAB [Suspect]
     Active Substance: VEDOLIZUMAB
     Indication: CROHN^S DISEASE
     Dosage: 300 MG, Q4WEEKS
     Route: 042
     Dates: start: 20100803
  2. MESALAZINE [Concomitant]
     Active Substance: MESALAMINE
     Dosage: 1000 MG, TID
     Route: 048
     Dates: start: 20150518, end: 20150520
  3. FERROUS SULFATE [Concomitant]
     Active Substance: FERROUS SULFATE\FERROUS SULFATE, DRIED
     Dosage: 300 MG, QD
     Route: 048
     Dates: start: 20101221
  4. FERROUS SULFATE [Concomitant]
     Active Substance: FERROUS SULFATE\FERROUS SULFATE, DRIED
     Dosage: 300 MG, BID
     Route: 048
     Dates: start: 20140708
  5. AZATHIOPRINE. [Concomitant]
     Active Substance: AZATHIOPRINE
     Dosage: 125 MG, QD
     Route: 048
     Dates: start: 20141216
  6. CYANOCOBALAMIN. [Concomitant]
     Active Substance: CYANOCOBALAMIN
     Dosage: 1000 ?G, QD
     Route: 048
     Dates: start: 20150310
  7. MESALAZINE [Concomitant]
     Active Substance: MESALAMINE
     Dosage: 1000 MG, BID
     Route: 048
     Dates: start: 20150521
  8. MESALAZINE [Concomitant]
     Active Substance: MESALAMINE
     Indication: CROHN^S DISEASE
     Dosage: 1000 MG, BID
     Route: 048
     Dates: start: 20061123, end: 20150517
  9. CHARCOAL ACTIVATED [Concomitant]
     Active Substance: ACTIVATED CHARCOAL
     Dosage: 300 MG, UNK
     Route: 048
     Dates: start: 20111121

REACTIONS (1)
  - Sepsis [Recovered/Resolved]

NARRATIVE: CASE EVENT DATE: 20150514
